FAERS Safety Report 4772968-5 (Version None)
Quarter: 2005Q3

REPORT INFORMATION
  Report Type: 
  Country: None (occurrence: None)
  Receive Date: 20050916
  Receipt Date: 20050907
  Transmission Date: 20060218
  Serious: Yes (Death)
  Sender: FDA-Public Use
  Company Number: 216867

PATIENT
  Age: 71 Year
  Sex: Male
  Weight: 62 kg

DRUGS (6)
  1. MABTHERA(RITUXIMAB) CONC FOR SOLUTION FOR INFUSION [Suspect]
     Indication: LYMPHOMA
     Dosage: 630 MG, INTRAVENOUS
     Route: 042
     Dates: start: 20050609, end: 20050720
  2. ONCOVIN [Suspect]
     Indication: LYMPHOMA
     Dosage: 2 MG, INTRAVENOUS
     Route: 042
     Dates: start: 20050609, end: 20050720
  3. CYCLOPHOSPHAMIDE [Concomitant]
     Indication: LYMPHOMA
     Dosage: 1250MG, INTRAVENOUS
     Route: 042
     Dates: start: 20050609, end: 20050720
  4. PREDNISONE [Suspect]
     Indication: LYMPHOMA
     Dosage: 100MG, ORAL
     Route: 048
     Dates: start: 20050609, end: 20050720
  5. ADIABLASTINE (DOXORUBICIN, DOXORUBICIN HYDROCHLORIDE) [Suspect]
     Indication: LYMPHOMA
     Dosage: 85 MG, INTRAVENOUS
     Route: 042
     Dates: start: 20050609, end: 20050720
  6. INSULIN [Concomitant]

REACTIONS (1)
  - DEATH [None]
